FAERS Safety Report 7907269-7 (Version None)
Quarter: 2011Q4

REPORT INFORMATION
  Report Type: 
  Country: None (occurrence: None)
  Receive Date: 20111110
  Receipt Date: 20111028
  Transmission Date: 20120403
  Serious: Yes (Hospitalization)
  Sender: FDA-Public Use
  Company Number: US-GLAXOSMITHKLINE-A0871759A

PATIENT
  Age: 54 Year
  Sex: Male
  Weight: 112.7 kg

DRUGS (6)
  1. BUSPIRONE [Concomitant]
  2. LISINOPRIL [Concomitant]
  3. ZOCOR [Concomitant]
  4. AVANDIA [Suspect]
     Indication: TYPE 2 DIABETES MELLITUS
     Dosage: 8MG PER DAY
     Route: 048
     Dates: start: 20040105, end: 20080223
  5. ZETIA [Concomitant]
  6. INSULIN [Concomitant]

REACTIONS (6)
  - CHEST PAIN [None]
  - ANGINA UNSTABLE [None]
  - CARDIAC FAILURE CHRONIC [None]
  - ASTHENIA [None]
  - MOBILITY DECREASED [None]
  - CORONARY ARTERY BYPASS [None]
